FAERS Safety Report 8235613-2 (Version None)
Quarter: 2012Q1

REPORT INFORMATION
  Report Type: 
  Country: None (occurrence: None)
  Receive Date: 20120326
  Receipt Date: 20120314
  Transmission Date: 20120608
  Serious: No
  Sender: FDA-Public Use
  Company Number: IT-ELI_LILLY_AND_COMPANY-IT201203000478

PATIENT
  Sex: Male

DRUGS (5)
  1. CYMBALTA [Suspect]
     Dosage: 30 MG, QOD
     Route: 048
     Dates: start: 20120101
  2. CYMBALTA [Suspect]
     Indication: PANIC ATTACK
     Dosage: 60 MG, QD
     Route: 048
     Dates: start: 20100330
  3. CYMBALTA [Suspect]
     Dosage: 30 MG, EVERY THIRD DAY
     Route: 048
     Dates: end: 20120226
  4. FINASTERIDE [Concomitant]
     Indication: ALOPECIA
     Dosage: 1 MG, UNKNOWN
     Route: 048
     Dates: start: 20110101
  5. CYMBALTA [Suspect]
     Dosage: 30 MG, QD
     Route: 048
     Dates: end: 20120101

REACTIONS (2)
  - RESTLESS LEGS SYNDROME [None]
  - OFF LABEL USE [None]
